FAERS Safety Report 17943292 (Version 5)
Quarter: 2021Q2

REPORT INFORMATION
  Report Type: Spontaneous
  Country: US (occurrence: US)
  Receive Date: 20200625
  Receipt Date: 20210518
  Transmission Date: 20210717
  Serious: Yes (Hospitalization, Other)
  Sender: FDA-Public Use
  Company Number: US-PFIZER INC-2020163450

PATIENT
  Age: 47 Year
  Sex: Female

DRUGS (2)
  1. XELJANZ [Suspect]
     Active Substance: TOFACITINIB CITRATE
     Indication: RHEUMATOID ARTHRITIS
     Dosage: 5 MG, 2X/DAY
     Route: 048
     Dates: start: 202003, end: 202006
  2. XELJANZ [Suspect]
     Active Substance: TOFACITINIB CITRATE
     Dosage: 5 MG, 2X/DAY
     Route: 048
     Dates: start: 202003

REACTIONS (25)
  - Nasopharyngitis [Unknown]
  - Suspected COVID-19 [Unknown]
  - Blood pressure increased [Unknown]
  - Abdominal pain upper [Unknown]
  - Drug ineffective [Unknown]
  - Musculoskeletal stiffness [Unknown]
  - Migraine [Not Recovered/Not Resolved]
  - Myocardial infarction [Unknown]
  - Intervertebral disc protrusion [Unknown]
  - Influenza [Unknown]
  - Breast discharge [Unknown]
  - Breast pain [Unknown]
  - Liver disorder [Unknown]
  - Secretion discharge [Unknown]
  - Weight decreased [Unknown]
  - Constipation [Unknown]
  - Stress [Unknown]
  - Malaise [Unknown]
  - Viral infection [Unknown]
  - Fatigue [Unknown]
  - Pyrexia [Unknown]
  - Neuralgia [Unknown]
  - Illness [Unknown]
  - Condition aggravated [Unknown]
  - Feeling abnormal [Unknown]

NARRATIVE: CASE EVENT DATE: 2020
